FAERS Safety Report 4710555-5 (Version None)
Quarter: 2005Q3

REPORT INFORMATION
  Report Type: 
  Country: None (occurrence: None)
  Receive Date: 20050711
  Receipt Date: 20050615
  Transmission Date: 20060218
  Serious: Yes (Life-Threatening)
  Sender: FDA-Public Use
  Company Number: 2005UW09326

PATIENT
  Age: 68 Year
  Sex: Female
  Weight: 53.6 kg

DRUGS (6)
  1. CRESTOR [Suspect]
     Indication: DYSLIPIDAEMIA
     Route: 048
     Dates: start: 20050515
  2. APROVEL [Concomitant]
     Indication: HYPERTENSION
     Route: 048
     Dates: start: 20050401
  3. GLUCOVANCE [Concomitant]
     Indication: DIABETES MELLITUS
     Dosage: 250/125 MG
     Route: 048
     Dates: start: 20050614
  4. NEXIUM [Concomitant]
     Indication: GASTROOESOPHAGEAL REFLUX DISEASE
     Dates: end: 20050305
  5. NEXIUM [Concomitant]
     Indication: BARRETT'S OESOPHAGUS
     Dates: end: 20050305
  6. ZELMAC [Concomitant]
     Indication: IRRITABLE BOWEL SYNDROME
     Route: 048
     Dates: start: 20050305

REACTIONS (2)
  - HYPERTENSIVE CRISIS [None]
  - HYPOGLYCAEMIA [None]
